FAERS Safety Report 4518865-1 (Version None)
Quarter: 2004Q4

REPORT INFORMATION
  Report Type: 
  Country: None (occurrence: None)
  Receive Date: 20041201
  Receipt Date: 20041117
  Transmission Date: 20050328
  Serious: Yes (Hospitalization)
  Sender: FDA-Public Use
  Company Number: 0104-1976

PATIENT
  Age: 75 Year
  Sex: Male
  Weight: 86.1834 kg

DRUGS (4)
  1. ADVICOR [Suspect]
     Indication: BLOOD TRIGLYCERIDES INCREASED
     Dosage: 2 TABLET (S) QHS PO
     Route: 048
     Dates: start: 20020101, end: 20041111
  2. ADVICOR [Suspect]
     Indication: LOW DENSITY LIPOPROTEIN INCREASED
     Dosage: 2 TABLET (S) QHS PO
     Route: 048
     Dates: start: 20020101, end: 20041111
  3. LOPRESSOR [Concomitant]
  4. HYZAAR [Concomitant]

REACTIONS (2)
  - BLOOD URINE PRESENT [None]
  - RENAL CELL CARCINOMA STAGE UNSPECIFIED [None]
